FAERS Safety Report 6322288-2 (Version None)
Quarter: 2009Q3

REPORT INFORMATION
  Report Type: 
  Country: None (occurrence: None)
  Receive Date: 20090824
  Receipt Date: 20090129
  Transmission Date: 20100115
  Serious: No
  Sender: FDA-Public Use
  Company Number: US-ABBOTT-09P-163-0500994-00

PATIENT
  Age: 60 Year
  Sex: Female
  Weight: 59.02 kg

DRUGS (10)
  1. NIASPAN [Suspect]
     Indication: HYPERLIPIDAEMIA
     Route: 048
     Dates: start: 20080821, end: 20081010
  2. NIASPAN [Suspect]
     Route: 048
     Dates: start: 20081010, end: 20090116
  3. STEROID INJECTION [Concomitant]
     Indication: ARTHRALGIA
     Dates: start: 20081201, end: 20081201
  4. CATIA XL [Concomitant]
     Indication: BLOOD PRESSURE
  5. AMBIEN [Concomitant]
     Indication: INSOMNIA
  6. VAGISAM [Concomitant]
     Indication: HORMONE REPLACEMENT THERAPY
  7. ZANTAC [Concomitant]
     Indication: DRUG USE FOR UNKNOWN INDICATION
  8. FISH OIL [Concomitant]
     Indication: DRUG USE FOR UNKNOWN INDICATION
  9. M.V.I. [Concomitant]
     Indication: DRUG USE FOR UNKNOWN INDICATION
  10. DURAGESIC-100 [Concomitant]
     Indication: DRUG USE FOR UNKNOWN INDICATION

REACTIONS (4)
  - ARTHRALGIA [None]
  - DIABETES MELLITUS [None]
  - HEPATIC ENZYME INCREASED [None]
  - SWELLING FACE [None]
